FAERS Safety Report 12907866 (Version 1)
Quarter: 2016Q4

REPORT INFORMATION
  Report Type: Spontaneous
  Country: US (occurrence: US)
  Receive Date: 20161103
  Receipt Date: 20161103
  Transmission Date: 20170207
  Serious: No
  Sender: FDA-Public Use
  Company Number: US-PFIZER INC-2016509391

PATIENT
  Age: 57 Year
  Sex: Female

DRUGS (1)
  1. TOLTERODINE TARTRATE. [Suspect]
     Active Substance: TOLTERODINE TARTRATE
     Dosage: 4 MG, UNK

REACTIONS (5)
  - Dizziness [Unknown]
  - Headache [Unknown]
  - Constipation [Unknown]
  - Nausea [Unknown]
  - Drug ineffective [Unknown]
